FAERS Safety Report 10052132 (Version 1)
Quarter: 2014Q2

REPORT INFORMATION
  Report Type: Spontaneous
  Country: US (occurrence: None)
  Receive Date: 20140401
  Receipt Date: 20140401
  Transmission Date: 20141212
  Serious: Yes (Other)
  Sender: FDA-Public Use
  Company Number: None

PATIENT
  Age: 55 Year
  Sex: Female

DRUGS (2)
  1. EXJADE [Suspect]
     Indication: SICKLE CELL ANAEMIA
     Route: 048
     Dates: start: 20131217
  2. EXJADE [Suspect]
     Indication: IRON METABOLISM DISORDER
     Route: 048
     Dates: start: 20131217

REACTIONS (2)
  - Flatulence [None]
  - Inappropriate schedule of drug administration [None]
